FAERS Safety Report 5575002-2 (Version None)
Quarter: 2007Q4

REPORT INFORMATION
  Report Type: 
  Country: None (occurrence: None)
  Receive Date: 20071227
  Receipt Date: 20071219
  Transmission Date: 20080405
  Serious: Yes (Other)
  Sender: FDA-Public Use
  Company Number: B0501039A

PATIENT
  Sex: Female

DRUGS (1)
  1. AROPAX [Suspect]
     Indication: BORDERLINE PERSONALITY DISORDER
     Route: 065

REACTIONS (12)
  - AGGRESSION [None]
  - ANGER [None]
  - DRY MOUTH [None]
  - EMOTIONAL DISORDER [None]
  - HAEMORRHAGE [None]
  - HYPERACUSIS [None]
  - HYPERHIDROSIS [None]
  - MOOD ALTERED [None]
  - NAUSEA [None]
  - SCAB [None]
  - SCAR [None]
  - SELF MUTILATION [None]
